FAERS Safety Report 21738902 (Version 2)
Quarter: 2022Q4

REPORT INFORMATION
  Report Type: Spontaneous
  Country: US (occurrence: US)
  Receive Date: 20221216
  Receipt Date: 20221219
  Transmission Date: 20230113
  Serious: Yes (Other)
  Sender: FDA-Public Use
  Company Number: US-ABBVIE-4239100

PATIENT
  Weight: 113.39 kg

DRUGS (3)
  1. SYNTHROID [Suspect]
     Active Substance: LEVOTHYROXINE SODIUM
     Indication: Pituitary tumour benign
     Dosage: 112 MICROGRAM
     Route: 048
     Dates: start: 2015
  2. TESTOSTERONE [Suspect]
     Active Substance: TESTOSTERONE
     Indication: Blood testosterone decreased
     Route: 065
  3. HYDROCORTISONE [Concomitant]
     Active Substance: HYDROCORTISONE
     Indication: Pituitary tumour benign

REACTIONS (11)
  - Brain injury [Unknown]
  - Dyspepsia [Unknown]
  - Cerebral haemorrhage [Unknown]
  - Deafness [Unknown]
  - Eye disorder [Unknown]
  - Angiopathy [Unknown]
  - Pain [Unknown]
  - Exostosis [Unknown]
  - Panic attack [Unknown]
  - Anosmia [Unknown]
  - Pituitary tumour benign [Unknown]

NARRATIVE: CASE EVENT DATE: 20180101
